FAERS Safety Report 9301552 (Version 1)
Quarter: 2013Q2

REPORT INFORMATION
  Report Type: Spontaneous
  Country: FR (occurrence: FR)
  Receive Date: 20130521
  Receipt Date: 20130521
  Transmission Date: 20140414
  Serious: Yes (Hospitalization)
  Sender: FDA-Public Use
  Company Number: FR-BAYER-2013-060827

PATIENT
  Age: 15 Year
  Sex: Female

DRUGS (4)
  1. PARACETAMOL [Suspect]
     Dosage: 8 G
  2. IBUPROFEN [Suspect]
     Dosage: 2G
  3. NAPROXEN SODIUM ({= 220 MG) [Suspect]
     Dosage: 4.4 G
  4. PSEUDOEPHEDRINE+CHLORPHENIRAMINE [Suspect]
     Dosage: 300 MG

REACTIONS (2)
  - Renal failure [Recovered/Resolved]
  - Intentional overdose [None]
